FAERS Safety Report 6329492-8 (Version None)
Quarter: 2009Q3

REPORT INFORMATION
  Report Type: 
  Country: None (occurrence: None)
  Receive Date: 20090825
  Receipt Date: 20090825
  Transmission Date: 20100115
  Serious: Yes (Other)
  Sender: FDA-Public Use
  Company Number: None

PATIENT
  Age: 59 Year
  Sex: Female
  Weight: 68.0396 kg

DRUGS (1)
  1. LEVAQUIN [Suspect]
     Indication: URINARY TRACT INFECTION
     Dosage: 500 MG ONE TIME PER DAY PO
     Route: 048
     Dates: start: 20090814, end: 20090818

REACTIONS (7)
  - ARTHRALGIA [None]
  - BACK PAIN [None]
  - FEELING COLD [None]
  - FLUSHING [None]
  - HEADACHE [None]
  - NEUROPATHY PERIPHERAL [None]
  - TENDONITIS [None]
